FAERS Safety Report 22538044 (Version 1)
Quarter: 2023Q2

REPORT INFORMATION
  Report Type: Spontaneous
  Country: US (occurrence: US)
  Receive Date: 20230608
  Receipt Date: 20230608
  Transmission Date: 20230722
  Serious: No
  Sender: FDA-Public Use
  Company Number: US-SA-SAC20230608000152

PATIENT
  Age: 16 Year
  Sex: Male
  Weight: 58.5 kg

DRUGS (12)
  1. DUPIXENT [Suspect]
     Active Substance: DUPILUMAB
     Indication: Illness
     Dosage: 400 MG, 1X
     Route: 058
     Dates: start: 20230525, end: 20230525
  2. ALBUTEROL SULFATE [Concomitant]
     Active Substance: ALBUTEROL SULFATE
     Dosage: UNK
  3. TRETINOIN [Concomitant]
     Active Substance: TRETINOIN
     Dosage: UNK
  4. TACROLIMUS [Concomitant]
     Active Substance: TACROLIMUS
     Dosage: UNK
  5. TRIAMCINOLONE ACETONIDE [Concomitant]
     Active Substance: TRIAMCINOLONE ACETONIDE
     Dosage: UNK
  6. CLINDAMYCIN PHOSPHATE [Concomitant]
     Active Substance: CLINDAMYCIN PHOSPHATE
     Dosage: UNK
  7. CEPHALEXIN [Concomitant]
     Active Substance: CEPHALEXIN
     Dosage: UNK
  8. AZITHROMYCIN [Concomitant]
     Active Substance: AZITHROMYCIN
     Dosage: UNK
  9. DOXYCYCLINE [Concomitant]
     Active Substance: DOXYCYCLINE
     Dosage: UNK
  10. MOMETASONE FUROATE [Concomitant]
     Active Substance: MOMETASONE FUROATE
     Dosage: UNK
  11. DESONIDE [Concomitant]
     Active Substance: DESONIDE
     Dosage: UNK
  12. PREVACID [Concomitant]
     Active Substance: LANSOPRAZOLE
     Dosage: UNK

REACTIONS (2)
  - Rash erythematous [Not Recovered/Not Resolved]
  - Pruritus [Not Recovered/Not Resolved]

NARRATIVE: CASE EVENT DATE: 20230101
